FAERS Safety Report 5335924-4 (Version None)
Quarter: 2007Q2

REPORT INFORMATION
  Report Type: 
  Country: None (occurrence: None)
  Receive Date: 20070301
  Receipt Date: 20061117
  Transmission Date: 20071010
  Serious: Yes (Hospitalization)
  Sender: FDA-Public Use
  Company Number: A03200605999

PATIENT
  Sex: Female

DRUGS (3)
  1. ELOXATIN [Suspect]
     Dosage: INTRAVENOUS NOS
     Route: 042
     Dates: start: 20060901, end: 20060901
  2. FLUOROURACIL [Suspect]
     Dosage: INTRAVENOUS NOS
     Route: 042
     Dates: start: 20060901, end: 20060901
  3. LEUCOVORIN CALCIUM [Suspect]
     Dosage: INTRAVENOUS NOS
     Route: 042
     Dates: start: 20060901, end: 20060901

REACTIONS (4)
  - ANAPHYLACTIC REACTION [None]
  - CHILLS [None]
  - PYREXIA [None]
  - VOMITING [None]
